FAERS Safety Report 17543769 (Version 1)
Quarter: 2020Q1

REPORT INFORMATION
  Report Type: Spontaneous
  Country: US (occurrence: US)
  Receive Date: 20200316
  Receipt Date: 20200316
  Transmission Date: 20200409
  Serious: No
  Sender: FDA-Public Use
  Company Number: US-BIOGEN-2020BI00839628

PATIENT
  Age: 42 Year
  Sex: Female

DRUGS (3)
  1. TECFIDERA [Suspect]
     Active Substance: DIMETHYL FUMARATE
     Dosage: MAINTENANCE DOSE.?TECFIDERA TAKE ONE CAPSULE [120MG] BY MOUTH TWICE  DAILY FOR 7 DAYS [BEGAN 02/0...
     Route: 048
     Dates: start: 20200211
  2. TECFIDERA [Suspect]
     Active Substance: DIMETHYL FUMARATE
     Route: 065
     Dates: start: 20200131
  3. TECFIDERA [Suspect]
     Active Substance: DIMETHYL FUMARATE
     Indication: MULTIPLE SCLEROSIS
     Dosage: STARTING DOSE?TECFIDERA TAKE ONE CAPSULE [120MG] BY MOUTH TWICE  DAILY FOR 7 DAYS [BEGAN 02/04/20...
     Route: 048
     Dates: start: 20200204, end: 20200210

REACTIONS (7)
  - Product dose omission [Unknown]
  - Abdominal pain [Unknown]
  - Nausea [Unknown]
  - Thirst [Not Recovered/Not Resolved]
  - Diarrhoea [Unknown]
  - Dyspnoea [Unknown]
  - Abdominal distension [Unknown]

NARRATIVE: CASE EVENT DATE: 20200206
